FAERS Safety Report 4526318-X (Version None)
Quarter: 2004Q4

REPORT INFORMATION
  Report Type: 
  Country: None (occurrence: None)
  Receive Date: 20041210
  Receipt Date: 20041202
  Transmission Date: 20050328
  Serious: Yes (Death)
  Sender: FDA-Public Use
  Company Number: VISP-NO-0412S-0504

PATIENT
  Age: 89 Year
  Sex: Male

DRUGS (5)
  1. VISIPAQUE [Suspect]
     Indication: ARTERIAL BYPASS OPERATION
     Dosage: 100 ML, SINGLE DOSE, I.A.
     Dates: start: 20040821, end: 20040821
  2. ACETAMINOPHEN [Concomitant]
  3. HEPARIN( HEPARINE) [Concomitant]
  4. CEFAMANDOLE NAFATE [Concomitant]
  5. BUFLOMEDIL HYDROCHLORIDE (FONZYLANE0 [Concomitant]

REACTIONS (3)
  - POST PROCEDURAL COMPLICATION [None]
  - RENAL FAILURE ACUTE [None]
  - RHABDOMYOLYSIS [None]
